FAERS Safety Report 9514658 (Version 1)
Quarter: 2013Q1

REPORT INFORMATION
  Report Type: Spontaneous
  Country: US (occurrence: None)
  Receive Date: 20130305
  Receipt Date: 20130305
  Transmission Date: 20140127
  Serious: Yes (Other)
  Sender: FDA-Public Use
  Company Number: 163-21880-12123094

PATIENT
  Age: 65 Year
  Sex: Female

DRUGS (7)
  1. REVLIMID (LENALIDOMIDE) [Suspect]
     Indication: MYELODYSPLASTIC SYNDROME
     Route: 048
     Dates: start: 20100419, end: 20121211
  2. DICYCLOMINE (DICYCLOVERINE HYDROCHLORIDE) [Concomitant]
  3. DIPHENOXYLATE/ATROPINE (LOMOTIL) [Concomitant]
  4. IBUPROFEN [Concomitant]
  5. LEVOTHYROXINE [Concomitant]
  6. ASA (ACETYLSALICYLIC ACID) [Concomitant]
  7. VITAMIN B12 (CYANOCOBALAMIN) [Concomitant]

REACTIONS (1)
  - Acute myeloid leukaemia [None]
